FAERS Safety Report 14881677 (Version 1)
Quarter: 2018Q2

REPORT INFORMATION
  Report Type: Spontaneous
  Country: CA (occurrence: CA)
  Receive Date: 20180511
  Receipt Date: 20180511
  Transmission Date: 20180711
  Serious: Yes (Other)
  Sender: FDA-Public Use
  Company Number: CA-PFIZER INC-2018192262

PATIENT
  Age: 62 Year
  Sex: Male

DRUGS (11)
  1. ATORVASTATIN CALCIUM. [Suspect]
     Active Substance: ATORVASTATIN CALCIUM
     Dosage: 40 MG, AT BEDTIME
  2. GLYBURIDE. [Concomitant]
     Active Substance: GLYBURIDE
     Dosage: 2.5 MG, DAILY
  3. INVOKANA [Concomitant]
     Active Substance: CANAGLIFLOZIN
     Dosage: 300 MG, DAILY
  4. PANTOPRAZOLE [Concomitant]
     Active Substance: PANTOPRAZOLE
     Dosage: 40 MG, DAILY
  5. PRO-AAS [Concomitant]
     Dosage: 80 MG, DAILY
  6. D-TABS [Concomitant]
     Active Substance: CHOLECALCIFEROL
     Dosage: 10000 IU, WEEKLY
  7. COVERSYL /00790702/ [Concomitant]
     Active Substance: PERINDOPRIL
     Dosage: 4 MG, DAILY
  8. METFORMIN [Concomitant]
     Active Substance: METFORMIN HYDROCHLORIDE
     Dosage: 1000 MG (TWO 500 MG TABLETS), 2X/DAY
  9. PREVNAR [Concomitant]
     Active Substance: PNEUMOCOCCAL 7-VALENT CONJUGATE VACCINE (DIPHTHERIA CRM197 PROTEIN)
     Dosage: UNK
     Dates: start: 20180501, end: 20180501
  10. VITAMIN B12 [Concomitant]
     Active Substance: CYANOCOBALAMIN
     Dosage: 1000 UG, WEEKLY FOR 6 WEEKS, THEN ONCE A MONTH
     Route: 058
  11. NITRO /00003201/ [Concomitant]
     Active Substance: NITROGLYCERIN
     Dosage: UNK, AS NEEDED

REACTIONS (2)
  - Crohn^s disease [Unknown]
  - Anal abscess [Recovered/Resolved]

NARRATIVE: CASE EVENT DATE: 2017
